FAERS Safety Report 18009073 (Version 1)
Quarter: 2020Q3

REPORT INFORMATION
  Report Type: Spontaneous
  Country: US (occurrence: US)
  Receive Date: 20200710
  Receipt Date: 20200710
  Transmission Date: 20201103
  Serious: Yes (Hospitalization)
  Sender: FDA-Public Use
  Company Number: US-SAOL THERAPEUTICS-2019SAO00480

PATIENT
  Age: 53 Year
  Sex: Female

DRUGS (6)
  1. DILAUDID [Suspect]
     Active Substance: HYDROMORPHONE HYDROCHLORIDE
  2. LIORESAL [Suspect]
     Active Substance: BACLOFEN
     Indication: MUSCLE SPASTICITY
     Dosage: UNK; DID A 20% INCREASE WHICH THEY HAVE TYPICALLY DONE IN THE PAST
     Route: 037
     Dates: end: 2019
  3. LIORESAL [Suspect]
     Active Substance: BACLOFEN
     Dosage: 624.9 ?G, \DAY (FLEX WITH BOLUS AT 1 AM OF 74.4 ?G)
     Route: 037
     Dates: start: 20191023, end: 20191105
  4. BENZOS [Suspect]
     Active Substance: BENZODIAZEPINE
  5. LIORESAL [Suspect]
     Active Substance: BACLOFEN
     Indication: MULTIPLE SCLEROSIS
     Dosage: 760 ?G, \DAY
     Route: 037
     Dates: start: 2019, end: 20191023
  6. LIORESAL [Suspect]
     Active Substance: BACLOFEN
     Dosage: BOLUSES ADJUSTED DOWN BY 40 %
     Route: 037
     Dates: start: 20191105

REACTIONS (13)
  - Illness [Recovering/Resolving]
  - Nystagmus [Recovering/Resolving]
  - Therapeutic response decreased [Recovering/Resolving]
  - Mental status changes [Recovering/Resolving]
  - Asthenia [Recovering/Resolving]
  - Overdose [Recovering/Resolving]
  - Pruritus [Recovering/Resolving]
  - Nausea [Recovering/Resolving]
  - Muscle spasticity [Recovering/Resolving]
  - Respiratory arrest [Recovering/Resolving]
  - Unresponsive to stimuli [Recovered/Resolved]
  - Device infusion issue [Unknown]
  - Hypotonia [Recovering/Resolving]

NARRATIVE: CASE EVENT DATE: 2019
